FAERS Safety Report 8255869-X (Version None)
Quarter: 2012Q2

REPORT INFORMATION
  Report Type: 
  Country: None (occurrence: None)
  Receive Date: 20120403
  Receipt Date: 20120325
  Transmission Date: 20120825
  Serious: Yes (Hospitalization)
  Sender: FDA-Public Use
  Company Number: US-ACTELION-A-NJ2011-55047

PATIENT

DRUGS (2)
  1. EPOPROSTENOL SODIUM [Suspect]
     Indication: PULMONARY ARTERIAL HYPERTENSION
     Dosage: 9 NG/KG, PER MIN
     Route: 041
     Dates: start: 20110907
  2. SILDENAFIL [Concomitant]

REACTIONS (4)
  - RASH [None]
  - ERYTHEMA [None]
  - CONDITION AGGRAVATED [None]
  - INFECTION [None]
